FAERS Safety Report 4829400-2 (Version None)
Quarter: 2005Q4

REPORT INFORMATION
  Report Type: 
  Country: None (occurrence: None)
  Receive Date: 20051028
  Receipt Date: 20050505
  Transmission Date: 20060501
  Serious: No
  Sender: FDA-Public Use
  Company Number: US131305

PATIENT
  Age: 33 Year
  Sex: Male

DRUGS (7)
  1. SENSIPAR [Suspect]
     Indication: HYPERPARATHYROIDISM SECONDARY
     Dosage: 30 MG, PO
     Route: 048
     Dates: start: 20050126
  2. EPOGEN (EPOETIN ALFA) (EPOETIN ALFA) [Concomitant]
  3. IRBESARTAN [Concomitant]
  4. MINOXIDIL [Concomitant]
  5. DIATX [Concomitant]
  6. CLONIDINE [Concomitant]
  7. SEVELAMER HCL [Concomitant]

REACTIONS (4)
  - HEADACHE [None]
  - INFLUENZA LIKE ILLNESS [None]
  - MYALGIA [None]
  - NECK PAIN [None]
